FAERS Safety Report 11640820 (Version 1)
Quarter: 2015Q4

REPORT INFORMATION
  Report Type: Spontaneous
  Country: US (occurrence: None)
  Receive Date: 20151016
  Receipt Date: 20151016
  Transmission Date: 20160304
  Serious: Yes (Hospitalization)
  Sender: FDA-Public Use
  Company Number: None

PATIENT
  Age: 56 Year
  Sex: Male
  Weight: 140.6 kg

DRUGS (1)
  1. LEUPROLIDE ACETATE. [Suspect]
     Active Substance: LEUPROLIDE ACETATE
     Dates: end: 20150803

REACTIONS (7)
  - Arteriosclerosis coronary artery [None]
  - Hypokalaemia [None]
  - Myocardial ischaemia [None]
  - Pulmonary mass [None]
  - Oesophagitis [None]
  - Anaemia [None]
  - Coronary artery stenosis [None]

NARRATIVE: CASE EVENT DATE: 20150808
